FAERS Safety Report 9107643 (Version 2)
Quarter: 2013Q2

REPORT INFORMATION
  Report Type: Report from Study
  Country: US (occurrence: US)
  Receive Date: 20130221
  Receipt Date: 20130410
  Transmission Date: 20140414
  Serious: Yes (Other)
  Sender: FDA-Public Use
  Company Number: US-ABBOTT-13P-163-1049061-00

PATIENT
  Age: 42 Year
  Sex: Female

DRUGS (3)
  1. HUMIRA [Suspect]
     Indication: CROHN^S DISEASE
  2. CYMBALTA [Concomitant]
     Indication: DEPRESSION
     Dosage: 60 MG DAILY
     Route: 048
  3. ABILIFY [Concomitant]
     Indication: DEPRESSION
     Dosage: 5 MG DAILY
     Route: 048

REACTIONS (9)
  - Aphagia [Recovering/Resolving]
  - Cholecystectomy [Recovering/Resolving]
  - Abdominal pain [Recovering/Resolving]
  - Nausea [Recovering/Resolving]
  - Pyrexia [Recovering/Resolving]
  - Stomatitis [Recovering/Resolving]
  - Crohn^s disease [Recovering/Resolving]
  - Abdominal pain [Recovering/Resolving]
  - Diarrhoea [Recovering/Resolving]
